FAERS Safety Report 10139383 (Version 2)
Quarter: 2014Q2

REPORT INFORMATION
  Report Type: Spontaneous
  Country: US (occurrence: US)
  Receive Date: 20140429
  Receipt Date: 20140527
  Transmission Date: 20141212
  Serious: No
  Sender: FDA-Public Use
  Company Number: US-JNJFOC-20140404851

PATIENT
  Age: 35 Year
  Sex: Male
  Weight: 91.63 kg

DRUGS (2)
  1. INVEGA SUSTENNA [Suspect]
     Indication: SCHIZOPHRENIA
     Route: 030
  2. IBUPROFEN [Concomitant]
     Indication: PAIN
     Route: 065

REACTIONS (1)
  - Injection site mass [Recovering/Resolving]
